FAERS Safety Report 22524118 (Version 1)
Quarter: 2023Q2

REPORT INFORMATION
  Report Type: Spontaneous
  Country: FR (occurrence: FR)
  Receive Date: 20230606
  Receipt Date: 20230606
  Transmission Date: 20230721
  Serious: Yes (Hospitalization)
  Sender: FDA-Public Use
  Company Number: FR-AMGEN-FRASP2023094519

PATIENT
  Age: 35 Year
  Sex: Female
  Weight: 72 kg

DRUGS (8)
  1. ARANESP [Suspect]
     Active Substance: DARBEPOETIN ALFA
     Indication: Anaemia
     Dosage: 60 MICROGRAM, QMO
     Route: 058
  2. PLAQUENIL [Suspect]
     Active Substance: HYDROXYCHLOROQUINE SULFATE
     Indication: Systemic lupus erythematosus
     Dosage: 200 MILLIGRAM, Q12H
     Route: 048
  3. PREDNISONE [Suspect]
     Active Substance: PREDNISONE
     Indication: Systemic lupus erythematosus
     Dosage: 5 MILLIGRAM, QD
     Route: 048
  4. RAMIPRIL [Suspect]
     Active Substance: RAMIPRIL
     Indication: Hypertension
     Dosage: 5 MILLIGRAM, Q12H
     Route: 048
  5. RITUXIMAB [Suspect]
     Active Substance: RITUXIMAB
     Indication: Lupus nephritis
     Dosage: 500 MILLIGRAM, QD
     Route: 042
     Dates: start: 20220614, end: 20220614
  6. RITUXIMAB [Suspect]
     Active Substance: RITUXIMAB
     Dosage: 500 MILLIGRAM, QD
     Route: 042
     Dates: start: 20220614, end: 20220614
  7. BACTRIM [Suspect]
     Active Substance: SULFAMETHOXAZOLE\TRIMETHOPRIM
     Indication: Antifungal prophylaxis
     Dosage: 1 DOSAGE FORM, QOD
     Route: 048
  8. BENLYSTA [Suspect]
     Active Substance: BELIMUMAB
     Indication: Lupus nephritis
     Dosage: 1 DOSAGE FORM, QWK
     Route: 058

REACTIONS (1)
  - Agranulocytosis [Recovering/Resolving]

NARRATIVE: CASE EVENT DATE: 20230501
